FAERS Safety Report 5342542-0 (Version None)
Quarter: 2007Q2

REPORT INFORMATION
  Report Type: 
  Country: None (occurrence: None)
  Receive Date: 20070601
  Receipt Date: 20070522
  Transmission Date: 20071010
  Serious: Yes (Other)
  Sender: FDA-Public Use
  Company Number: DE-PFIZER INC-2007029477

PATIENT
  Sex: Male
  Weight: 111 kg

DRUGS (5)
  1. ZELDOX (CAPSULES) [Suspect]
     Indication: PSYCHOTIC DISORDER
     Route: 048
  2. ALL OTHER THERAPEUTIC PRODUCTS [Concomitant]
  3. CIPRALEX [Concomitant]
     Route: 048
  4. PROMETHAZINE [Concomitant]
     Route: 048
  5. AKINETON [Concomitant]

REACTIONS (4)
  - BLOOD BILIRUBIN INCREASED [None]
  - CHOLESTASIS [None]
  - DIARRHOEA [None]
  - HEPATIC STEATOSIS [None]
